FAERS Safety Report 5551722-0 (Version None)
Quarter: 2007Q4

REPORT INFORMATION
  Report Type: 
  Country: None (occurrence: None)
  Receive Date: 20071129
  Receipt Date: 20070402
  Transmission Date: 20080405
  Serious: Yes (Other)
  Sender: FDA-Public Use
  Company Number: PHEH2007US01121

PATIENT
  Age: 39 Year
  Sex: Male

DRUGS (1)
  1. LAMISIL [Suspect]
     Indication: NAIL TINEA
     Dosage: ORAL
     Route: 048
     Dates: start: 20060701

REACTIONS (1)
  - PLATELET COUNT DECREASED [None]
